FAERS Safety Report 19874663 (Version 4)
Quarter: 2022Q1

REPORT INFORMATION
  Report Type: Report from Study
  Country: US (occurrence: US)
  Receive Date: 20210922
  Receipt Date: 20220221
  Transmission Date: 20220423
  Serious: Yes (Hospitalization, Other)
  Sender: FDA-Public Use
  Company Number: US-UCBSA-2021043633

PATIENT
  Age: 27 Year
  Sex: Male

DRUGS (2)
  1. LACOSAMIDE [Suspect]
     Active Substance: LACOSAMIDE
     Indication: Seizure
     Dosage: 150 MILLIGRAM, 2X/DAY (BID)
  2. LACOSAMIDE [Suspect]
     Active Substance: LACOSAMIDE
     Dosage: 75 MILLIGRAM, 2X/DAY (TAKING 150MG AND SPLITTING THAT IN HALF)
     Dates: start: 20211226

REACTIONS (5)
  - Weight increased [Not Recovered/Not Resolved]
  - Seizure [Recovered/Resolved]
  - Substance abuse [Recovered/Resolved]
  - Vertigo [Recovered/Resolved]
  - Wrong technique in product usage process [Unknown]

NARRATIVE: CASE EVENT DATE: 20210601
